FAERS Safety Report 17733889 (Version 1)
Quarter: 2020Q2

REPORT INFORMATION
  Report Type: Spontaneous
  Country: CA (occurrence: CA)
  Receive Date: 20200501
  Receipt Date: 20200501
  Transmission Date: 20200714
  Serious: Yes (Life-Threatening, Disabling)
  Sender: FDA-Public Use
  Company Number: CA-PFIZER INC-2020172171

PATIENT
  Age: 60 Year
  Sex: Female
  Weight: 49 kg

DRUGS (2)
  1. VENLAFAXINE HCL [Suspect]
     Active Substance: VENLAFAXINE HYDROCHLORIDE
     Indication: DEPRESSION
     Dosage: 75 MG 1 EVERY 24 HOURS
  2. VENLAFAXINE HCL [Suspect]
     Active Substance: VENLAFAXINE HYDROCHLORIDE
     Dosage: 2 EVERY 1 DAYS

REACTIONS (8)
  - Product substitution issue [Unknown]
  - Pruritus [Unknown]
  - Hyperhidrosis [Unknown]
  - Rash [Unknown]
  - Therapeutic product effect decreased [Unknown]
  - Swelling [Unknown]
  - Histamine level increased [Unknown]
  - Hypersensitivity [Unknown]
